FAERS Safety Report 9518068 (Version 1)
Quarter: 2013Q1

REPORT INFORMATION
  Report Type: Spontaneous
  Country: US (occurrence: None)
  Receive Date: 20130305
  Receipt Date: 20130305
  Transmission Date: 20140127
  Serious: Yes (Other)
  Sender: FDA-Public Use
  Company Number: 163-21880-12063529

PATIENT
  Age: 65 Year
  Sex: Female
  Weight: 62.6 kg

DRUGS (12)
  1. REVLIMID [Suspect]
     Indication: PLASMA CELL MYELOMA
     Dosage: 25 MG, 21 IN 28 D, PO
     Route: 048
     Dates: start: 20100222
  2. DEXAMETHASONE (DEXAMETHASONE) (UNKNOWN) [Concomitant]
  3. VELCADE [Concomitant]
  4. XANAX (ALPRAZOLAM) (UNKNOWN) [Concomitant]
  5. LACTULOSE (LACTULOSE) (UNKNOWN) [Concomitant]
  6. ZOMETA (ZOLEDRONIC ACID) (UNKNOWN) [Concomitant]
  7. CALCIUM ANTACID (CALCIUM CARBONATE) (UNKNOWN) [Concomitant]
  8. ECOTRIN (ACETYLSALICYLIC ACID) (UNKNOWN) [Concomitant]
  9. MIRALAX (MACROGOL) (UNKNOWN) [Concomitant]
  10. OXYCONTIN (OXYCODONE HYDROCHLORIDE) (UNKNOWN) [Concomitant]
  11. SENEKOT (SENNA FRUIT) (UNKNOWN) [Concomitant]
  12. OXYCODONE (OXYCODONE) (UNKNOWN) (OXYCODONE) [Concomitant]

REACTIONS (8)
  - Cataract [None]
  - Oedema peripheral [None]
  - Neuropathy peripheral [None]
  - Sinus congestion [None]
  - Tooth infection [None]
  - Gastric disorder [None]
  - Joint swelling [None]
  - Muscle strain [None]
